FAERS Safety Report 5108411-6 (Version None)
Quarter: 2006Q3

REPORT INFORMATION
  Report Type: 
  Country: None (occurrence: None)
  Receive Date: 20060915
  Receipt Date: 20060831
  Transmission Date: 20061208
  Serious: Yes (Hospitalization)
  Sender: FDA-Public Use
  Company Number: 2006S1007509

PATIENT
  Age: 43 Year
  Sex: Male
  Weight: 95.2554 kg

DRUGS (12)
  1. FENTANYL TRANSDERMAL SYSTEM [Suspect]
     Indication: ABDOMINAL PAIN
     Dosage: 25 UG/HR; 3D; TDER
     Dates: start: 20060804, end: 20060807
  2. FENTANYL TRANSDERMAL SYSTEM [Suspect]
     Indication: COLON CANCER
     Dosage: 25 UG/HR; 3D; TDER
     Dates: start: 20060804, end: 20060807
  3. FENTANYL TRANSDERMAL SYSTEM [Suspect]
     Indication: PAIN
     Dosage: 25 UG/HR; 3D; TDER
     Dates: start: 20060804, end: 20060807
  4. LISINOPRIL [Suspect]
     Indication: HYPERTENSION
     Dosage: 10 MG; QD; PO
     Route: 048
     Dates: start: 20060727
  5. METOPROLOL [Concomitant]
  6. ASPIRIN [Concomitant]
  7. CLOPIDOGREL [Concomitant]
  8. ATORVASTATIN CALCIUM [Concomitant]
  9. OMEPRAZOLE [Concomitant]
  10. GLYCERYL TRINITRATE [Concomitant]
  11. SIMETHICONE [Concomitant]
  12. SUCRALFATE [Concomitant]

REACTIONS (7)
  - CONFUSIONAL STATE [None]
  - DIZZINESS [None]
  - DYSARTHRIA [None]
  - HYPOTENSION [None]
  - MEMORY IMPAIRMENT [None]
  - PYREXIA [None]
  - SYNCOPE [None]
